FAERS Safety Report 18868022 (Version 1)
Quarter: 2021Q1

REPORT INFORMATION
  Report Type: Spontaneous
  Country: FR (occurrence: FR)
  Receive Date: 20210209
  Receipt Date: 20210209
  Transmission Date: 20210420
  Serious: Yes (Hospitalization)
  Sender: FDA-Public Use
  Company Number: FR-PFIZER INC-2021102937

PATIENT
  Age: 53 Year
  Sex: Female

DRUGS (5)
  1. IMFINZI [Suspect]
     Active Substance: DURVALUMAB
     Dosage: 1500 MG
     Route: 042
     Dates: start: 20201110, end: 20201208
  2. CARBOPLATINE [Suspect]
     Active Substance: CARBOPLATIN
     Indication: BREAST CANCER
     Dosage: 230 MG
     Dates: start: 20201110
  3. PACLITAXEL. [Suspect]
     Active Substance: PACLITAXEL
     Indication: BREAST CANCER
     Dosage: 230 MG
     Route: 042
     Dates: start: 20201110
  4. IMFINZI [Suspect]
     Active Substance: DURVALUMAB
     Indication: BREAST CANCER
     Dosage: 230 MG
     Route: 042
     Dates: start: 20201110
  5. PACLITAXEL. [Suspect]
     Active Substance: PACLITAXEL
     Dosage: 159 MG
     Route: 042
     Dates: start: 20201110

REACTIONS (2)
  - Cholestasis [Recovering/Resolving]
  - Hepatocellular injury [Recovering/Resolving]

NARRATIVE: CASE EVENT DATE: 20201229
